FAERS Safety Report 24816168 (Version 1)
Quarter: 2025Q1

REPORT INFORMATION
  Report Type: Spontaneous
  Country: TW (occurrence: TW)
  Receive Date: 20250107
  Receipt Date: 20250107
  Transmission Date: 20250409
  Serious: Yes (Death, Other)
  Sender: PFIZER
  Company Number: TW-TAKEDA-2025TUS000422

PATIENT
  Age: 82 Year
  Sex: Female
  Weight: 60 kg

DRUGS (5)
  1. PANTOPRAZOLE SODIUM [Suspect]
     Active Substance: PANTOPRAZOLE SODIUM
     Indication: Haematemesis
     Route: 042
     Dates: start: 20241102, end: 20241123
  2. PANTOPRAZOLE SODIUM [Suspect]
     Active Substance: PANTOPRAZOLE SODIUM
     Indication: Gastrointestinal haemorrhage
  3. PANTOPRAZOLE SODIUM [Suspect]
     Active Substance: PANTOPRAZOLE SODIUM
     Indication: Nasogastric output abnormal
  4. SODIUM BICARBONATE [Suspect]
     Active Substance: SODIUM BICARBONATE
     Indication: Pneumonia
     Route: 042
  5. ERTAPENEM [Concomitant]
     Active Substance: ERTAPENEM
     Indication: Pneumonia

REACTIONS (14)
  - Rash [Fatal]
  - Cutaneous lymphoma [Unknown]
  - Stevens-Johnson syndrome [Unknown]
  - Toxic epidermal necrolysis [Unknown]
  - Drug reaction with eosinophilia and systemic symptoms [Unknown]
  - Pneumonia [Unknown]
  - Dermatitis exfoliative generalised [Unknown]
  - Vasculitis [Unknown]
  - Drug eruption [Unknown]
  - Cellulitis [Unknown]
  - Skin wound [Unknown]
  - Angiopathy [Unknown]
  - Drug hypersensitivity [Unknown]
  - Off label use [Unknown]

NARRATIVE: CASE EVENT DATE: 20241102
